FAERS Safety Report 25621595 (Version 1)
Quarter: 2025Q3

REPORT INFORMATION
  Report Type: Spontaneous
  Country: EU (occurrence: EU)
  Receive Date: 20250730
  Receipt Date: 20250730
  Transmission Date: 20251021
  Serious: Yes (Disabling, Other)
  Sender: RANBAXY
  Company Number: EU-SUN PHARMACEUTICAL INDUSTRIES LTD-2025RR-519873

PATIENT
  Age: 51 Year
  Sex: Female

DRUGS (10)
  1. PACLITAXEL [Suspect]
     Active Substance: PACLITAXEL
     Indication: Breast cancer metastatic
     Route: 065
  2. DOXORUBICIN [Suspect]
     Active Substance: DOXORUBICIN
     Indication: Breast cancer metastatic
     Route: 065
  3. LETROZOLE [Suspect]
     Active Substance: LETROZOLE
     Indication: Breast cancer metastatic
     Dosage: 2.5 MILLIGRAM, DAILY
     Route: 065
  4. ZOLEDRONIC ACID [Suspect]
     Active Substance: ZOLEDRONIC ACID
     Indication: Metastases to bone
     Route: 042
  5. FULVESTRANT [Suspect]
     Active Substance: FULVESTRANT
     Indication: Metastases to bone
     Route: 030
     Dates: end: 202501
  6. PALBOCICLIB [Suspect]
     Active Substance: PALBOCICLIB
     Indication: Metastases to bone
     Dosage: 125 MILLIGRAM, DAILY
     Route: 065
     Dates: end: 202501
  7. DOCETAXEL [Suspect]
     Active Substance: DOCETAXEL
     Indication: Breast cancer metastatic
     Route: 065
  8. GEMCITABINE [Suspect]
     Active Substance: GEMCITABINE
     Indication: Breast cancer metastatic
     Route: 065
  9. CAPECITABINE [Suspect]
     Active Substance: CAPECITABINE
     Indication: Chemotherapy
     Dosage: 1250 MILLIGRAM/SQ. METER, DAILY
     Route: 065
  10. VINORELBINE [Suspect]
     Active Substance: VINORELBINE TARTRATE
     Indication: Breast cancer metastatic
     Route: 065
     Dates: start: 201501

REACTIONS (7)
  - Gait disturbance [Unknown]
  - Disease progression [Unknown]
  - Hypertransaminasaemia [Unknown]
  - Nausea [Unknown]
  - Fatigue [Unknown]
  - Leukopenia [Unknown]
  - Palmar-plantar erythrodysaesthesia syndrome [Unknown]
